FAERS Safety Report 7640369-8 (Version None)
Quarter: 2011Q3

REPORT INFORMATION
  Report Type: 
  Country: None (occurrence: None)
  Receive Date: 20110728
  Receipt Date: 20110725
  Transmission Date: 20111222
  Serious: Yes (Hospitalization)
  Sender: FDA-Public Use
  Company Number: US-BIOGENIDEC-2011BI023972

PATIENT
  Age: 43 Year
  Sex: Male

DRUGS (3)
  1. TYSABRI [Suspect]
     Route: 042
     Dates: start: 20070517, end: 20070517
  2. AMBIEN [Concomitant]
     Dates: end: 20110101
  3. TYSABRI [Suspect]
     Indication: MULTIPLE SCLEROSIS
     Route: 042
     Dates: start: 20081107, end: 20110113

REACTIONS (5)
  - ROAD TRAFFIC ACCIDENT [None]
  - GASTRIC PERFORATION [None]
  - TIBIA FRACTURE [None]
  - AMNESIA [None]
  - RIB FRACTURE [None]
